FAERS Safety Report 25798695 (Version 2)
Quarter: 2025Q3

REPORT INFORMATION
  Report Type: Spontaneous
  Country: US (occurrence: US)
  Receive Date: 20250913
  Receipt Date: 20250924
  Transmission Date: 20251021
  Serious: Yes (Hospitalization)
  Sender: GLENMARK
  Company Number: US-MLMSERVICE-20250825-PI626143-00247-1

PATIENT
  Age: 20 Year
  Sex: Female
  Weight: 79 kg

DRUGS (45)
  1. ONDANSETRON [Suspect]
     Active Substance: ONDANSETRON
     Indication: Nausea
     Route: 042
     Dates: start: 200801
  2. ONDANSETRON [Suspect]
     Active Substance: ONDANSETRON
     Route: 065
  3. MORPHINE [Concomitant]
     Active Substance: MORPHINE
     Indication: Pain
     Route: 042
     Dates: start: 200801
  4. DIPHENHYDRAMINE [Concomitant]
     Active Substance: DIPHENHYDRAMINE
     Indication: Anaesthesia
     Route: 065
     Dates: start: 200801
  5. DIPHENHYDRAMINE [Concomitant]
     Active Substance: DIPHENHYDRAMINE
     Indication: Anxiety
     Route: 065
  6. FENTANYL [Concomitant]
     Active Substance: FENTANYL
     Indication: Anaesthesia
     Route: 065
     Dates: start: 200801
  7. GLYCOPYRROLATE [Concomitant]
     Active Substance: GLYCOPYRROLATE
     Indication: Anaesthesia
     Route: 065
     Dates: start: 200801
  8. LIDOCAINE [Concomitant]
     Active Substance: LIDOCAINE
     Indication: Anaesthesia
     Route: 065
     Dates: start: 200801
  9. NEOSTIGMINE [Concomitant]
     Active Substance: NEOSTIGMINE
     Indication: Anaesthesia
     Route: 065
     Dates: start: 200801
  10. PROPOFOL [Concomitant]
     Active Substance: PROPOFOL
     Indication: Anaesthesia
     Route: 042
     Dates: start: 200801
  11. PROPOFOL [Concomitant]
     Active Substance: PROPOFOL
     Route: 042
     Dates: start: 200801
  12. REMIFENTANIL [Concomitant]
     Active Substance: REMIFENTANIL
     Indication: Anaesthesia
     Route: 042
  13. DEXAMETHASONE [Concomitant]
     Active Substance: DEXAMETHASONE
     Indication: Anaesthesia
     Route: 065
  14. SCOPOLAMINE [Concomitant]
     Active Substance: SCOPOLAMINE
     Indication: Anaesthesia
     Route: 065
  15. ACETAMINOPHEN [Concomitant]
     Active Substance: ACETAMINOPHEN
     Indication: Anaesthesia
     Route: 065
  16. DEXMEDETOMIDINE [Concomitant]
     Active Substance: DEXMEDETOMIDINE
     Indication: Anaesthesia
     Route: 065
  17. SEVOFLURANE [Concomitant]
     Active Substance: SEVOFLURANE
     Indication: Anaesthesia
     Route: 065
     Dates: start: 200801
  18. VECURONIUM [Concomitant]
     Active Substance: VECURONIUM BROMIDE
     Indication: Anaesthesia
     Route: 065
     Dates: start: 200801
  19. METHOTREXATE [Concomitant]
     Active Substance: METHOTREXATE
     Indication: Fibromyalgia
     Dosage: 20 MILLIGRAM, QW
     Route: 065
  20. COLCHICINE [Concomitant]
     Active Substance: COLCHICINE
     Indication: Fibromyalgia
     Dosage: 0.6 MILLIGRAM, QD
     Route: 065
  21. PREGABALIN [Concomitant]
     Active Substance: PREGABALIN
     Indication: Fibromyalgia
     Route: 065
  22. FOLIC ACID [Concomitant]
     Active Substance: FOLIC ACID
     Indication: Fibromyalgia
     Dosage: 1000 MILLIGRAM, QD
     Route: 065
  23. DULOXETINE [Concomitant]
     Active Substance: DULOXETINE
     Indication: Anxiety
     Dosage: 20 MILLIGRAM, QD
     Route: 065
  24. LORAZEPAM [Concomitant]
     Active Substance: LORAZEPAM
     Indication: Anxiety
     Route: 065
  25. ZOLMITRIPTAN [Concomitant]
     Active Substance: ZOLMITRIPTAN
     Indication: Migraine
     Route: 065
  26. SUGAMMADEX [Concomitant]
     Active Substance: SUGAMMADEX
     Indication: Anaesthesia
     Route: 065
  27. FAMOTIDINE [Concomitant]
     Active Substance: FAMOTIDINE
     Indication: Gastrooesophageal reflux disease
     Dosage: 20 MILLIGRAM, BID
     Route: 065
  28. MEDROXYPROGESTERONE ACETATE [Concomitant]
     Active Substance: MEDROXYPROGESTERONE ACETATE
     Indication: Contraception
     Route: 065
  29. BUPIVACAINE [Concomitant]
     Active Substance: BUPIVACAINE
     Indication: Anaesthesia
     Route: 065
  30. CEFAZOLIN [Concomitant]
     Active Substance: CEFAZOLIN
     Indication: Anaesthesia
     Route: 065
  31. GABAPENTIN [Concomitant]
     Active Substance: GABAPENTIN
     Indication: Anaesthesia
     Route: 065
  32. CLINDAMYCIN [Concomitant]
     Active Substance: CLINDAMYCIN
     Indication: Anaesthesia
     Route: 065
  33. HALOPERIDOL [Concomitant]
     Active Substance: HALOPERIDOL
     Indication: Anaesthesia
     Route: 065
  34. HYDROMORPHONE [Concomitant]
     Active Substance: HYDROMORPHONE
     Indication: Anaesthesia
     Route: 065
  35. KETAMINE [Concomitant]
     Active Substance: KETAMINE
     Indication: Anaesthesia
     Route: 065
  36. KETOROLAC [Concomitant]
     Active Substance: KETOROLAC TROMETHAMINE
     Indication: Anaesthesia
     Route: 065
  37. MEPERIDINE [Concomitant]
     Active Substance: MEPERIDINE
     Indication: Anaesthesia
     Route: 065
  38. METHADONE [Concomitant]
     Active Substance: METHADONE HYDROCHLORIDE
     Indication: Anaesthesia
     Route: 065
  39. MIDAZOLAM [Concomitant]
     Active Substance: MIDAZOLAM
     Indication: Anaesthesia
     Route: 065
  40. PROCHLORPERAZINE [Concomitant]
     Active Substance: PROCHLORPERAZINE
     Indication: Anaesthesia
     Route: 065
  41. OXYCODONE [Concomitant]
     Active Substance: OXYCODONE
     Indication: Anaesthesia
     Route: 065
  42. ROCURONIUM [Concomitant]
     Active Substance: ROCURONIUM BROMIDE
     Indication: Anaesthesia
     Route: 065
  43. SUCCINYLCHOLINE [Concomitant]
     Active Substance: SUCCINYLCHOLINE
     Indication: Anaesthesia
     Route: 065
  44. CYCLOBENZAPRINE [Concomitant]
     Active Substance: CYCLOBENZAPRINE
     Indication: Movement disorder
     Route: 065
  45. CYCLOBENZAPRINE [Concomitant]
     Active Substance: CYCLOBENZAPRINE
     Indication: Parkinsonism

REACTIONS (1)
  - Parkinsonism [Recovered/Resolved]

NARRATIVE: CASE EVENT DATE: 20080101
